FAERS Safety Report 5592074-X (Version None)
Quarter: 2007Q4

REPORT INFORMATION
  Report Type: 
  Country: None (occurrence: None)
  Receive Date: 20071217
  Receipt Date: 20071009
  Transmission Date: 20080405
  Serious: No
  Sender: FDA-Public Use
  Company Number: BDI-010321

PATIENT
  Age: 90 Year
  Sex: Male

DRUGS (2)
  1. MULTIHANCE [Suspect]
     Indication: MEMORY IMPAIRMENT
     Dosage: 065
     Dates: start: 20071002, end: 20071002
  2. MULTIHANCE [Suspect]
     Indication: NUCLEAR MAGNETIC RESONANCE IMAGING BRAIN
     Dosage: 065
     Dates: start: 20071002, end: 20071002

REACTIONS (1)
  - HYPERSENSITIVITY [None]
